FAERS Safety Report 4844680-5 (Version None)
Quarter: 2005Q4

REPORT INFORMATION
  Report Type: 
  Country: None (occurrence: None)
  Receive Date: 20051129
  Receipt Date: 20051117
  Transmission Date: 20060501
  Serious: Yes (Other)
  Sender: FDA-Public Use
  Company Number: 2005156373

PATIENT
  Age: 4 Year
  Sex: Female
  Weight: 31.7518 kg

DRUGS (1)
  1. LISTERINE MOUTHWASH ADVANCED ARTIC MINT (MENTHOL, METHYL SALICYLATE, [Suspect]
     Indication: ACCIDENTAL EXPOSURE
     Dosage: ^ A BUNCH^ ONCE, ORAL
     Route: 048
     Dates: start: 20051117, end: 20051117

REACTIONS (3)
  - ABNORMAL BEHAVIOUR [None]
  - ACCIDENTAL DRUG INTAKE BY CHILD [None]
  - FEELING DRUNK [None]
